FAERS Safety Report 23465293 (Version 1)
Quarter: 2024Q1

REPORT INFORMATION
  Report Type: Other
  Country: None (occurrence: US)
  Receive Date: 20240201
  Receipt Date: 20240201
  Transmission Date: 20240410
  Serious: Yes (Life-Threatening, Hospitalization, Other)
  Sender: FDA-Public Use
  Company Number: US-Breckenridge Pharmaceutical, Inc.-2152419

PATIENT
  Age: 42 Year
  Sex: Female

DRUGS (1)
  1. TERBINAFINE [Suspect]
     Active Substance: TERBINAFINE
     Indication: Onychomycosis
     Route: 048

REACTIONS (5)
  - Aplastic anaemia [Unknown]
  - Pancytopenia [Unknown]
  - Neutropenia [Unknown]
  - Reticulocyte count decreased [Unknown]
  - Haemoglobin decreased [Unknown]
